FAERS Safety Report 9305586 (Version 1)
Quarter: 2013Q2

REPORT INFORMATION
  Report Type: Spontaneous
  Country: US (occurrence: None)
  Receive Date: 20130520
  Receipt Date: 20130520
  Transmission Date: 20140414
  Serious: Yes (Hospitalization, Other)
  Sender: FDA-Public Use
  Company Number: 2013-001531

PATIENT
  Age: 91 Year
  Sex: Female

DRUGS (12)
  1. ACTONEL [Suspect]
     Indication: OSTEOPENIA
     Dates: start: 2010
  2. ACTONEL [Suspect]
     Indication: OSTEOPOROSIS
     Dates: start: 2010
  3. ACTONEL (RISEDRONATE SODIUM) TABLET, 35MG [Suspect]
     Indication: OSTEOPENIA
     Dates: start: 1999
  4. ACTONEL (RISEDRONATE SODIUM) TABLET, 35MG [Suspect]
     Indication: OSTEOPOROSIS
     Dates: start: 1999
  5. VITAMIN NOS (VITAMIN NOS) [Concomitant]
  6. JANUMET (METFORMIN HYDROCHLORIDE, SITAGLIPTIN PHOSPHATE MONOHYDRATE) [Concomitant]
  7. HYDROCHLOROTHIAZIDE (HYDROCHLOROTHIAZIDE) [Concomitant]
  8. ALL OTHER THERAPEUTIC PRODUCTS [Concomitant]
  9. SIMVASTATIN (SIMVASTATIN) [Concomitant]
  10. BABY ASPIRIN (ACETYLSALICYLIC ACID) [Concomitant]
  11. VENOFER [Concomitant]
  12. JANUVIA (SITAGLIPTIN PHOSPHATE) [Concomitant]

REACTIONS (10)
  - Fall [None]
  - Humerus fracture [None]
  - Femur fracture [None]
  - Exostosis [None]
  - Nasal septum deviation [None]
  - Skeletal injury [None]
  - Dyspnoea [None]
  - Musculoskeletal chest pain [None]
  - Exostosis [None]
  - Intervertebral disc degeneration [None]
